FAERS Safety Report 7276176-8 (Version None)
Quarter: 2011Q1

REPORT INFORMATION
  Report Type: 
  Country: None (occurrence: None)
  Receive Date: 20110204
  Receipt Date: 20110113
  Transmission Date: 20110831
  Serious: Yes (Hospitalization, Other)
  Sender: FDA-Public Use
  Company Number: US-BAUSCH-2011BL000236

PATIENT
  Age: 71 Year
  Sex: Female

DRUGS (7)
  1. TOBRADEX [Concomitant]
     Indication: CORNEAL ABRASION
     Route: 047
     Dates: start: 20100101, end: 20101201
  2. VIGAMOX [Concomitant]
     Indication: CORNEAL ABRASION
     Route: 047
     Dates: start: 20100101, end: 20101201
  3. TOBRADEX [Concomitant]
     Indication: CORNEAL ABRASION
     Route: 047
     Dates: start: 20100101, end: 20101201
  4. METHOTREXATE [Concomitant]
     Indication: RHEUMATOID ARTHRITIS
     Dates: end: 20101201
  5. HYDROXYCHLOROQUINE [Concomitant]
     Indication: RHEUMATOID ARTHRITIS
     Dates: end: 20101201
  6. ARTIFICIAL TEARS [Concomitant]
     Indication: DRY EYE
     Route: 047
  7. SOOTHE XTRA HYDRATION [Suspect]
     Indication: PRODUCT USED FOR UNKNOWN INDICATION
     Route: 047

REACTIONS (5)
  - KERATITIS BACTERIAL [None]
  - ENDOPHTHALMITIS [None]
  - HYPOPYON [None]
  - FUSARIUM INFECTION [None]
  - INTRAOCULAR PRESSURE INCREASED [None]
